FAERS Safety Report 20974515 (Version 1)
Quarter: 2022Q2

REPORT INFORMATION
  Report Type: Spontaneous
  Country: US (occurrence: None)
  Receive Date: 20220616
  Receipt Date: 20220616
  Transmission Date: 20220721
  Serious: Yes (Other)
  Sender: FDA-Public Use
  Company Number: None

PATIENT
  Age: 17 Year
  Sex: Female
  Weight: 59.6 kg

DRUGS (2)
  1. TRIKAFTA [Suspect]
     Active Substance: ELEXACAFTOR\IVACAFTOR\TEZACAFTOR
     Indication: Cystic fibrosis
     Dosage: FREQUENCY : TWICE A DAY;?
     Route: 048
     Dates: start: 20210201, end: 20220502
  2. Escitalopram 10 mg daily [Concomitant]
     Dates: start: 20200513

REACTIONS (3)
  - Abnormal behaviour [None]
  - Intentional self-injury [None]
  - Device use issue [None]

NARRATIVE: CASE EVENT DATE: 20220511
